FAERS Safety Report 12632733 (Version 2)
Quarter: 2016Q3

REPORT INFORMATION
  Report Type: Spontaneous
  Country: US (occurrence: US)
  Receive Date: 20160808
  Receipt Date: 20160808
  Transmission Date: 20161109
  Serious: No
  Sender: FDA-Public Use
  Company Number: US-BEH-2015056686

PATIENT
  Sex: Female
  Weight: 108 kg

DRUGS (15)
  1. PREDNISONE. [Concomitant]
     Active Substance: PREDNISONE
  2. TRAZODONE [Concomitant]
     Active Substance: TRAZODONE HYDROCHLORIDE
  3. CEFDINIR. [Concomitant]
     Active Substance: CEFDINIR
  4. DIPHENHYDRAMINE. [Concomitant]
     Active Substance: DIPHENHYDRAMINE
  5. DOXYCLINE [Concomitant]
     Active Substance: DOXYCYCLINE
  6. PRIMIDONE. [Concomitant]
     Active Substance: PRIMIDONE
  7. ALLERGY RELIEF [Concomitant]
  8. BAG BALM [Concomitant]
  9. HIZENTRA [Suspect]
     Active Substance: HUMAN IMMUNOGLOBULIN G
     Route: 058
  10. EPIPEN [Concomitant]
     Active Substance: EPINEPHRINE
  11. HIZENTRA [Suspect]
     Active Substance: HUMAN IMMUNOGLOBULIN G
     Indication: IMMUNODEFICIENCY COMMON VARIABLE
     Route: 058
  12. HIZENTRA [Suspect]
     Active Substance: HUMAN IMMUNOGLOBULIN G
     Route: 058
  13. FLUTICASONE PROP [Concomitant]
  14. LORAZEPAM. [Concomitant]
     Active Substance: LORAZEPAM
  15. CYCLOBENZAPRINE [Concomitant]
     Active Substance: CYCLOBENZAPRINE

REACTIONS (1)
  - Sinusitis [Unknown]
